FAERS Safety Report 13824722 (Version 1)
Quarter: 2017Q3

REPORT INFORMATION
  Report Type: Spontaneous
  Country: DE (occurrence: DE)
  Receive Date: 20170802
  Receipt Date: 20170802
  Transmission Date: 20171127
  Serious: Yes (Other)
  Sender: FDA-Public Use
  Company Number: DE-SUN PHARMACEUTICAL INDUSTRIES LTD-2017RR-146243

PATIENT
  Age: 66 Year
  Sex: Male

DRUGS (7)
  1. INSULIN [Concomitant]
     Active Substance: INSULIN NOS
     Indication: PRODUCT USED FOR UNKNOWN INDICATION
     Dosage: 8 IU, DAILY
     Route: 065
  2. XELEVIA [Concomitant]
     Active Substance: SITAGLIPTIN PHOSPHATE
     Indication: PRODUCT USED FOR UNKNOWN INDICATION
     Dosage: 100 MG, DAILY
     Route: 065
  3. FORMATRIS DA [Concomitant]
     Indication: PRODUCT USED FOR UNKNOWN INDICATION
     Dosage: 1 DF, DAILY
     Route: 065
  4. GLIMEPIRID [Concomitant]
     Active Substance: GLIMEPIRIDE
     Indication: PRODUCT USED FOR UNKNOWN INDICATION
     Dosage: 3 MG, DAILY
     Route: 065
  5. PANTOPRAZOLE [Suspect]
     Active Substance: PANTOPRAZOLE
     Indication: PRODUCT USED FOR UNKNOWN INDICATION
     Dosage: 40 MG, BID, 1 TABLET IN THE MORNING AND 1 IN THE EVENING
     Route: 048
     Dates: start: 20170321, end: 20170428
  6. PANTOPRAZOLE [Suspect]
     Active Substance: PANTOPRAZOLE
     Dosage: 40 MG, DAILY, 1 TABLET IN THE MORNING
     Route: 048
     Dates: start: 20170429, end: 20170515
  7. PANTOPRAZOLE [Suspect]
     Active Substance: PANTOPRAZOLE
     Dosage: 40 MG, DAILY, 1 TABLET BEFORE BREAKFAST
     Route: 048
     Dates: start: 20170709, end: 20170711

REACTIONS (2)
  - Respiratory distress [Unknown]
  - Dyspnoea [Unknown]

NARRATIVE: CASE EVENT DATE: 2017
